FAERS Safety Report 16286346 (Version 1)
Quarter: 2019Q2

REPORT INFORMATION
  Report Type: Report from Study
  Country: None (occurrence: US)
  Receive Date: 20190508
  Receipt Date: 20190508
  Transmission Date: 20190711
  Serious: Yes (Other)
  Sender: FDA-Public Use
  Company Number: US-ABBVIE-19S-163-2771045-00

PATIENT
  Age: 56 Year
  Sex: Male

DRUGS (1)
  1. LUPRON [Suspect]
     Active Substance: LEUPROLIDE ACETATE
     Indication: PRODUCT USED FOR UNKNOWN INDICATION
     Route: 065

REACTIONS (12)
  - Fatigue [Unknown]
  - Pollakiuria [Unknown]
  - Headache [Unknown]
  - Tooth disorder [Unknown]
  - Nicotine dependence [Unknown]
  - Hypothyroidism [Unknown]
  - Mediastinal mass [Unknown]
  - Central venous catheter removal [Unknown]
  - Thyroid disorder [Unknown]
  - Urinary retention [Unknown]
  - Wheezing [Unknown]
  - Prostate cancer metastatic [Unknown]

NARRATIVE: CASE EVENT DATE: 201611
